FAERS Safety Report 15329115 (Version 1)
Quarter: 2018Q3

REPORT INFORMATION
  Report Type: Report from Study
  Country: DE (occurrence: DE)
  Receive Date: 20180829
  Receipt Date: 20180829
  Transmission Date: 20181010
  Serious: Yes (Hospitalization, Other)
  Sender: FDA-Public Use
  Company Number: DE-B.I. PHARMACEUTICALS,INC./RIDGEFIELD-2018-BI-042802

PATIENT

DRUGS (23)
  1. PARACODEIN [Concomitant]
     Indication: COUGH
     Route: 048
  2. TOREM COR [Concomitant]
     Indication: POLYURIA
     Route: 048
  3. CITALOPRAM [Concomitant]
     Active Substance: CITALOPRAM HYDROBROMIDE
     Indication: DEPRESSION
     Route: 048
  4. OXYGESIC AKUT [Concomitant]
     Active Substance: OXYCODONE
     Indication: PAIN
     Route: 048
  5. PANTOZOL [Concomitant]
     Active Substance: PANTOPRAZOLE SODIUM
     Indication: HYPERCHLORHYDRIA
     Route: 048
  6. PASPERTIN [Concomitant]
     Indication: NAUSEA
     Route: 048
  7. MACROGOL [Concomitant]
     Active Substance: POLYETHYLENE GLYCOLS
     Indication: CONSTIPATION
     Route: 048
  8. ADENURIC [Suspect]
     Active Substance: FEBUXOSTAT
     Indication: HYPERURICAEMIA
     Route: 048
     Dates: start: 20130723
  9. RAMIPRIL. [Concomitant]
     Active Substance: RAMIPRIL
     Indication: HYPERTENSION
     Route: 048
  10. PERENTEROL [Concomitant]
     Active Substance: SACCHAROMYCES CEREVISIAE
     Indication: DIARRHOEA
     Route: 048
  11. NOVAMINSULFON [Concomitant]
     Active Substance: METAMIZOLE
     Indication: PAIN
     Route: 048
  12. ERYTHROCYTES [Concomitant]
     Active Substance: HUMAN RED BLOOD CELL
     Indication: ANAEMIA
     Route: 042
  13. PRADAXA [Suspect]
     Active Substance: DABIGATRAN ETEXILATE MESYLATE
     Indication: ANTICOAGULANT THERAPY
     Route: 048
  14. SPIRONOLACTON [Concomitant]
     Active Substance: SPIRONOLACTONE
     Indication: POLYURIA
     Route: 048
  15. ZOFRAN [Concomitant]
     Active Substance: ONDANSETRON HYDROCHLORIDE
     Indication: NAUSEA
     Route: 048
  16. ATOSIL [Concomitant]
     Active Substance: PROMETHAZINE HYDROCHLORIDE
     Indication: INSOMNIA
     Route: 048
  17. OLIMEL [Concomitant]
     Active Substance: AMINO ACIDS\DEXTROSE\SOYBEAN OIL
     Indication: DRUG THERAPY
     Route: 042
  18. BELOC ZOK MITE [Concomitant]
     Active Substance: METOPROLOL SUCCINATE
     Indication: HYPERTENSION
     Route: 048
  19. TARGIN [Concomitant]
     Active Substance: NALOXONE HYDROCHLORIDE\OXYCODONE HYDROCHLORIDE
     Indication: PAIN
     Route: 048
  20. IDEOS [Concomitant]
     Active Substance: CALCIUM CARBONATE\CHOLECALCIFEROL
     Indication: DRUG THERAPY
     Route: 048
  21. TAZOBAC [Concomitant]
     Active Substance: PIPERACILLIN SODIUM\TAZOBACTAM SODIUM
     Indication: INFECTION
     Route: 042
  22. EUBIOL [Concomitant]
     Indication: DIARRHOEA
     Route: 048
  23. ACC [Concomitant]
     Active Substance: ACETYLCYSTEINE
     Indication: INFECTION
     Route: 048

REACTIONS (2)
  - Stevens-Johnson syndrome [Unknown]
  - Toxic epidermal necrolysis [Unknown]
